FAERS Safety Report 8067131-9 (Version None)
Quarter: 2012Q1

REPORT INFORMATION
  Report Type: 
  Country: None (occurrence: None)
  Receive Date: 20120124
  Receipt Date: 20120109
  Transmission Date: 20120608
  Serious: Yes (Other)
  Sender: FDA-Public Use
  Company Number: IN-WATSON-2012-00765

PATIENT
  Age: 55 Year
  Sex: Female

DRUGS (1)
  1. TOPIRAMATE [Suspect]
     Indication: HEADACHE
     Dosage: 25 MG, UNK
     Route: 065

REACTIONS (5)
  - CORNEAL OEDEMA [None]
  - IRIS DISORDER [None]
  - CHOROIDAL EFFUSION [None]
  - FLAT ANTERIOR CHAMBER OF EYE [None]
  - ANGLE CLOSURE GLAUCOMA [None]
